FAERS Safety Report 21466715 (Version 7)
Quarter: 2025Q1

REPORT INFORMATION
  Report Type: Spontaneous
  Country: US (occurrence: US)
  Receive Date: 20221017
  Receipt Date: 20250103
  Transmission Date: 20250408
  Serious: No
  Sender: SANOFI AVENTIS
  Company Number: US-SA-SAC20221012000955

PATIENT
  Age: 50 Year
  Sex: Female

DRUGS (28)
  1. DUPIXENT [Suspect]
     Active Substance: DUPILUMAB
     Indication: Asthma
     Dosage: 300 MG, QOW
     Route: 058
     Dates: start: 20210721
  2. ALBUTEROL SULFATE [Concomitant]
     Active Substance: ALBUTEROL SULFATE
  3. ALBUTEROL SULFATE [Concomitant]
     Active Substance: ALBUTEROL SULFATE
  4. FLUCONAZOLE [Concomitant]
     Active Substance: FLUCONAZOLE
  5. FLUCONAZOLE [Concomitant]
     Active Substance: FLUCONAZOLE
  6. FLUTICASONE [Concomitant]
     Active Substance: FLUTICASONE
  7. FLUTICASONE [Concomitant]
     Active Substance: FLUTICASONE
  8. GAVILYTE G [Concomitant]
     Active Substance: POLYETHYLENE GLYCOL 3350\POTASSIUM CHLORIDE\SODIUM BICARBONATE\SODIUM CHLORIDE\SODIUM SULFATE
  9. GAVILYTE G [Concomitant]
     Active Substance: POLYETHYLENE GLYCOL 3350\POTASSIUM CHLORIDE\SODIUM BICARBONATE\SODIUM CHLORIDE\SODIUM SULFATE
  10. INCRUSE ELLIPTA [Concomitant]
     Active Substance: UMECLIDINIUM BROMIDE
  11. INCRUSE ELLIPTA [Concomitant]
     Active Substance: UMECLIDINIUM BROMIDE
  12. MONTELUKAST [Concomitant]
     Active Substance: MONTELUKAST
  13. MONTELUKAST [Concomitant]
     Active Substance: MONTELUKAST
  14. PREDNISONE [Concomitant]
     Active Substance: PREDNISONE
  15. PREDNISONE [Concomitant]
     Active Substance: PREDNISONE
  16. PREDNISONE [Concomitant]
     Active Substance: PREDNISONE
  17. SYMBICORT [Concomitant]
     Active Substance: BUDESONIDE\FORMOTEROL FUMARATE DIHYDRATE
  18. SYMBICORT [Concomitant]
     Active Substance: BUDESONIDE\FORMOTEROL FUMARATE DIHYDRATE
  19. VITAMIN D NOS [Concomitant]
     Active Substance: CHOLECALCIFEROL\ERGOCALCIFEROL
  20. TERCONAZOLE [Concomitant]
     Active Substance: TERCONAZOLE
  21. TERCONAZOLE [Concomitant]
     Active Substance: TERCONAZOLE
  22. SELENIUM SULFIDE [Concomitant]
     Active Substance: SELENIUM SULFIDE
  23. SELENIUM SULFIDE [Concomitant]
     Active Substance: SELENIUM SULFIDE
  24. ALBUTEROL [Concomitant]
     Active Substance: ALBUTEROL
  25. SUMATRIPTAN [Concomitant]
     Active Substance: SUMATRIPTAN
  26. ONDANSETRON [Concomitant]
     Active Substance: ONDANSETRON
  27. NYSTATIN [Concomitant]
     Active Substance: NYSTATIN
  28. DOTAREM [Concomitant]
     Active Substance: GADOTERATE MEGLUMINE

REACTIONS (7)
  - Eye pain [Unknown]
  - Headache [Not Recovered/Not Resolved]
  - Oropharyngeal pain [Unknown]
  - Eye irritation [Unknown]
  - Asthma [Not Recovered/Not Resolved]
  - Impaired quality of life [Not Recovered/Not Resolved]
  - Drug ineffective [Unknown]
